FAERS Safety Report 9678971 (Version 8)
Quarter: 2016Q1

REPORT INFORMATION
  Report Type: Report from Study
  Country: DE (occurrence: DE)
  Receive Date: 20131108
  Receipt Date: 20160331
  Transmission Date: 20160526
  Serious: Yes (Hospitalization)
  Sender: FDA-Public Use
  Company Number: DE-INCYTE CORPORATION-2013IN002619

PATIENT
  Sex: Male
  Weight: 61.9 kg

DRUGS (33)
  1. INCB018424 [Suspect]
     Active Substance: RUXOLITINIB
     Dosage: 10 MG, (2 DF 5 MG PER DAY)
     Route: 048
     Dates: start: 20140501, end: 20140502
  2. TORASEMIDE [Concomitant]
     Active Substance: TORSEMIDE
     Dosage: 10 MG, PER DAY
     Route: 065
     Dates: start: 20130726, end: 20130802
  3. SPIRONOLACTONE. [Concomitant]
     Active Substance: SPIRONOLACTONE
     Indication: OEDEMA PERIPHERAL
     Dosage: 100 MG, PER DAY
     Route: 065
     Dates: end: 20130725
  4. INCB018424 [Suspect]
     Active Substance: RUXOLITINIB
     Dosage: 5 MG, BID, (2 DF PER DAY)
     Route: 048
     Dates: start: 20130823, end: 20130827
  5. INCB018424 [Suspect]
     Active Substance: RUXOLITINIB
     Dosage: 30 MG PER DAY
     Route: 048
     Dates: start: 20131219, end: 20131223
  6. INCB018424 [Suspect]
     Active Substance: RUXOLITINIB
     Dosage: 20 MG, (4 DF 5 MG PER DAY)
     Route: 048
     Dates: start: 20140519, end: 20140731
  7. INCB018424 [Suspect]
     Active Substance: RUXOLITINIB
     Dosage: UNK
     Route: 048
     Dates: start: 20151208, end: 20160112
  8. INCB018424 [Suspect]
     Active Substance: RUXOLITINIB
     Dosage: 10 MG, QD (PER DAY)
     Route: 048
     Dates: start: 20160113, end: 20160205
  9. HYDREA [Concomitant]
     Active Substance: HYDROXYUREA
     Dosage: 500 MG, EVERY SECOND DAY
     Route: 065
     Dates: start: 20150127, end: 20160112
  10. INCB018424 [Suspect]
     Active Substance: RUXOLITINIB
     Dosage: 10 MG, (2 DF 5 MG PER DAY)
     Route: 048
     Dates: start: 20140328, end: 20140411
  11. INCB018424 [Suspect]
     Active Substance: RUXOLITINIB
     Dosage: 10 MG, QD (PER DAY)
     Route: 048
     Dates: start: 20141117, end: 20150126
  12. SPIRONOLACTONE. [Concomitant]
     Active Substance: SPIRONOLACTONE
     Dosage: 50 MG,PER DAY
     Route: 065
     Dates: start: 20130727, end: 20131119
  13. INCB018424 [Suspect]
     Active Substance: RUXOLITINIB
     Indication: MYELOFIBROSIS
     Dosage: 5 MG (6 DF PER DAY)
     Route: 048
     Dates: start: 20130720, end: 20130822
  14. INCB018424 [Suspect]
     Active Substance: RUXOLITINIB
     Dosage: 15 MG, (3 DF 5 MG PER DAY)
     Route: 048
     Dates: start: 20140412, end: 20140430
  15. INCB018424 [Suspect]
     Active Substance: RUXOLITINIB
     Dosage: 15 MG, (3 DF 5 MG PER DAY)
     Route: 048
     Dates: start: 20140503, end: 20140518
  16. DUODART [Concomitant]
     Active Substance: DUTASTERIDE\TAMSULOSIN
     Indication: BENIGN PROSTATIC HYPERPLASIA
     Dosage: UNK
  17. DUODART [Concomitant]
     Active Substance: DUTASTERIDE\TAMSULOSIN
     Dosage: 0.5 MG/0.4 MG, PER DAY
     Route: 065
     Dates: start: 20130726, end: 201406
  18. HYDREA [Concomitant]
     Active Substance: HYDROXYUREA
     Indication: LEUKOCYTOSIS
     Dosage: 500 MG, QD
     Route: 065
     Dates: start: 20140801, end: 20141202
  19. INCB018424 [Suspect]
     Active Substance: RUXOLITINIB
     Dosage: 5 MG, (4 DF PER DAY)
     Route: 048
     Dates: start: 20130911, end: 20131029
  20. HYDREA [Concomitant]
     Active Substance: HYDROXYUREA
     Dosage: 500 MG, QD
     Route: 065
     Dates: start: 20160113
  21. INCB018424 [Suspect]
     Active Substance: RUXOLITINIB
     Dosage: 5 MG, (4 DF PER DAY)
     Route: 048
     Dates: start: 20131031, end: 20131103
  22. SPIRONOLACTONE. [Concomitant]
     Active Substance: SPIRONOLACTONE
     Dosage: 50 MG,PER DAY
     Route: 065
     Dates: start: 20131203
  23. INCB018424 [Suspect]
     Active Substance: RUXOLITINIB
     Dosage: 5 MG, BID  (2 DF PER DAY)
     Route: 048
     Dates: start: 20130904, end: 20130910
  24. INCB018424 [Suspect]
     Active Substance: RUXOLITINIB
     Dosage: 10 MG, QD (PER DAY)
     Route: 048
     Dates: start: 20150413, end: 20151207
  25. DUODART [Concomitant]
     Active Substance: DUTASTERIDE\TAMSULOSIN
     Dosage: 0.5 MG, PER DAY
     Route: 065
  26. TORASEMIDE [Concomitant]
     Active Substance: TORSEMIDE
     Dosage: 10 MG, PER DAY
     Route: 065
     Dates: start: 20131209
  27. INCB018424 [Suspect]
     Active Substance: RUXOLITINIB
     Dosage: 5 MG, (4 DF PER DAY)
     Route: 048
     Dates: start: 20131107, end: 20131118
  28. INCB018424 [Suspect]
     Active Substance: RUXOLITINIB
     Dosage: 5 MG, (4 DF PER DAY)
     Route: 048
     Dates: start: 20131130, end: 20131218
  29. INCB018424 [Suspect]
     Active Substance: RUXOLITINIB
     Dosage: 20 MG, (4 DF 5 MG PER DAY)
     Route: 048
     Dates: start: 20131224, end: 20140113
  30. INCB018424 [Suspect]
     Active Substance: RUXOLITINIB
     Dosage: 30 MG, (2 DF 15 MG PER DAY)
     Route: 048
     Dates: start: 20140114, end: 20140328
  31. INCB018424 [Suspect]
     Active Substance: RUXOLITINIB
     Dosage: 15 MG, (3 DF 5 MG PER DAY)
     Route: 048
     Dates: start: 20150127, end: 20150408
  32. TORASEMIDE [Concomitant]
     Active Substance: TORSEMIDE
     Indication: OEDEMA PERIPHERAL
     Dosage: 15 MG, PER DAY
     Route: 065
     Dates: start: 201304, end: 20130725
  33. VERTIGO [Concomitant]
     Indication: DIZZINESS
     Dosage: UNK
     Route: 065
     Dates: start: 20140317

REACTIONS (4)
  - Burning sensation [Recovered/Resolved]
  - Pruritus [Unknown]
  - Cerebrovascular accident [Not Recovered/Not Resolved]
  - Thrombocytopenia [Unknown]

NARRATIVE: CASE EVENT DATE: 20131029
